FAERS Safety Report 6633379-0 (Version None)
Quarter: 2010Q1

REPORT INFORMATION
  Report Type: 
  Country: None (occurrence: None)
  Receive Date: 20100312
  Receipt Date: 20100301
  Transmission Date: 20100710
  Serious: Yes (Other)
  Sender: FDA-Public Use
  Company Number: AU-PFIZER INC-2010026959

PATIENT
  Sex: Female

DRUGS (1)
  1. ZOLOFT [Suspect]
     Dosage: LONG-TERM THERAPY

REACTIONS (5)
  - GALACTORRHOEA [None]
  - HAIR DISORDER [None]
  - PROLACTINOMA [None]
  - SKIN DISORDER [None]
  - VISUAL IMPAIRMENT [None]
